FAERS Safety Report 7831497-2 (Version None)
Quarter: 2011Q4

REPORT INFORMATION
  Report Type: 
  Country: None (occurrence: None)
  Receive Date: 20111021
  Receipt Date: 20111021
  Transmission Date: 20120403
  Serious: Yes (Other)
  Sender: FDA-Public Use
  Company Number: None

PATIENT
  Sex: Female

DRUGS (2)
  1. HYDROCHLOROTHIAZIDE [Concomitant]
  2. LOVASTATIN [Suspect]
     Indication: BLOOD CHOLESTEROL INCREASED
     Dosage: ONE TABLET ONCE A DAY
     Route: 048
     Dates: start: 20111008, end: 20111009

REACTIONS (3)
  - THROAT TIGHTNESS [None]
  - INFLUENZA [None]
  - UPPER RESPIRATORY TRACT INFECTION [None]
